FAERS Safety Report 15485359 (Version 1)
Quarter: 2018Q4

REPORT INFORMATION
  Report Type: Spontaneous
  Country: US (occurrence: US)
  Receive Date: 20181010
  Receipt Date: 20181010
  Transmission Date: 20190205
  Serious: No
  Sender: FDA-Public Use
  Company Number: US-ROCHE-2115609

PATIENT
  Sex: Female

DRUGS (2)
  1. COTELLIC [Suspect]
     Active Substance: COBIMETINIB
     Indication: MALIGNANT MELANOMA
     Dosage: 3 TABLETS BY MOUTH DAILY
     Route: 048
     Dates: start: 20180329
  2. ZELBORAF [Suspect]
     Active Substance: VEMURAFENIB
     Indication: MALIGNANT MELANOMA
     Dosage: 4 TABLETS BY MOUTH DAILY
     Route: 048
     Dates: start: 20180329

REACTIONS (1)
  - Rash [Unknown]
